FAERS Safety Report 5839384-6 (Version None)
Quarter: 2008Q3

REPORT INFORMATION
  Report Type: 
  Country: None (occurrence: None)
  Receive Date: 20080806
  Receipt Date: 20080724
  Transmission Date: 20090109
  Serious: Yes (Other)
  Sender: FDA-Public Use
  Company Number: A-CH2008-21365

PATIENT
  Age: 63 Year
  Sex: Female

DRUGS (1)
  1. ZAVESCA [Suspect]
     Indication: GAUCHER'S DISEASE
     Dosage: 100 MG, TID, ORAL
     Route: 048
     Dates: start: 19991201

REACTIONS (3)
  - COLONIC POLYP [None]
  - GASTROINTESTINAL TRACT ADENOMA [None]
  - INTESTINAL POLYP [None]
